FAERS Safety Report 22750820 (Version 2)
Quarter: 2023Q4

REPORT INFORMATION
  Report Type: Report from Study
  Country: IE (occurrence: IE)
  Receive Date: 20230726
  Receipt Date: 20231012
  Transmission Date: 20240110
  Serious: Yes (Death, Other)
  Sender: FDA-Public Use
  Company Number: IE-ROCHE-3317899

PATIENT
  Sex: Male
  Weight: 66 kg

DRUGS (1)
  1. TRASTUZUMAB [Suspect]
     Active Substance: TRASTUZUMAB
     Indication: Cholangiocarcinoma
     Dosage: UNK
     Route: 065

REACTIONS (4)
  - Neoplasm progression [Fatal]
  - Cardiac disorder [Unknown]
  - Ejection fraction decreased [Unknown]
  - Off label use [Unknown]

NARRATIVE: CASE EVENT DATE: 20230701
